FAERS Safety Report 25328892 (Version 1)
Quarter: 2025Q2

REPORT INFORMATION
  Report Type: Other
  Country: BG (occurrence: BG)
  Receive Date: 20250519
  Receipt Date: 20250519
  Transmission Date: 20250717
  Serious: Yes (Hospitalization, Other)
  Sender: ALVOGEN
  Company Number: BG-ALVOGEN-2025097975

PATIENT
  Age: 74 Year
  Sex: Female

DRUGS (1)
  1. LEVOTHYROXINE [Suspect]
     Active Substance: LEVOTHYROXINE
     Indication: Autoimmune thyroiditis

REACTIONS (2)
  - Diffuse large B-cell lymphoma [Unknown]
  - Metastases to lymph nodes [Unknown]
